FAERS Safety Report 20651066 (Version 1)
Quarter: 2022Q1

REPORT INFORMATION
  Report Type: Spontaneous
  Country: DE (occurrence: DE)
  Receive Date: 20220329
  Receipt Date: 20220329
  Transmission Date: 20220423
  Serious: Yes (Other)
  Sender: FDA-Public Use
  Company Number: DE-TEVA-2022-DE-2021420

PATIENT
  Age: 31 Year
  Sex: Male

DRUGS (4)
  1. ACETYLCYSTEINE [Interacting]
     Active Substance: ACETYLCYSTEINE
     Indication: Psychiatric symptom
     Dosage: 600 MILLIGRAM DAILY; AS A SINGLE DAILY DOSE
     Route: 065
  2. ACETYLCYSTEINE [Interacting]
     Active Substance: ACETYLCYSTEINE
     Indication: Prader-Willi syndrome
     Dosage: 1800 MILLIGRAM DAILY; INCREASED UP TO A TARGET DOSE OF 1800MG DAILY
     Route: 065
  3. ARIPIPRAZOLE [Interacting]
     Active Substance: ARIPIPRAZOLE
     Indication: Drug therapy
     Dosage: 5 MILLIGRAM DAILY;
     Route: 065
  4. SERTRALINE [Interacting]
     Active Substance: SERTRALINE HYDROCHLORIDE
     Indication: Drug therapy
     Dosage: 75 MILLIGRAM DAILY;
     Route: 065

REACTIONS (5)
  - Dermatillomania [Unknown]
  - Psychiatric symptom [Unknown]
  - Prader-Willi syndrome [Unknown]
  - Drug ineffective [Unknown]
  - Drug interaction [Unknown]
